FAERS Safety Report 7052641-3 (Version None)
Quarter: 2010Q4

REPORT INFORMATION
  Report Type: 
  Country: None (occurrence: None)
  Receive Date: 20101019
  Receipt Date: 20101007
  Transmission Date: 20110411
  Serious: Yes (Other)
  Sender: FDA-Public Use
  Company Number: US-PFIZER INC-2010071353

PATIENT
  Sex: Female
  Weight: 61.678 kg

DRUGS (2)
  1. TOVIAZ [Suspect]
     Dosage: 4 MG, 1X/DAY
     Route: 048
     Dates: start: 20100501
  2. TOVIAZ [Suspect]
     Dosage: 8 MG, 1X/DAY

REACTIONS (1)
  - VISION BLURRED [None]
